FAERS Safety Report 4791756-7 (Version None)
Quarter: 2005Q3

REPORT INFORMATION
  Report Type: 
  Country: None (occurrence: None)
  Receive Date: 20050930
  Receipt Date: 20050919
  Transmission Date: 20060218
  Serious: Yes (Hospitalization)
  Sender: FDA-Public Use
  Company Number: 2005-01874

PATIENT
  Age: 70 Year
  Sex: Male

DRUGS (2)
  1. BCG THERAPEUTICS [Suspect]
     Indication: BLADDER CANCER
     Dosage: I.VES., BLADDER
     Route: 043
  2. GLIBENCLAMIDE [Concomitant]

REACTIONS (19)
  - ABDOMINAL PAIN [None]
  - ARTHRALGIA [None]
  - BLOOD CREATININE INCREASED [None]
  - C-REACTIVE PROTEIN INCREASED [None]
  - CEREBRAL INFARCTION [None]
  - DIARRHOEA [None]
  - DYSARTHRIA [None]
  - ERYTHEMA [None]
  - FACIAL PARESIS [None]
  - HEMIPARESIS [None]
  - HENOCH-SCHONLEIN PURPURA [None]
  - LACUNAR INFARCTION [None]
  - LEUKOCYTOCLASTIC VASCULITIS [None]
  - PURPURA [None]
  - PYREXIA [None]
  - RECTAL HAEMORRHAGE [None]
  - RECTAL ULCER [None]
  - RED BLOOD CELL SEDIMENTATION RATE INCREASED [None]
  - RED BLOOD CELLS URINE POSITIVE [None]
